FAERS Safety Report 7624041-6 (Version None)
Quarter: 2011Q3

REPORT INFORMATION
  Report Type: 
  Country: None (occurrence: None)
  Receive Date: 20110719
  Receipt Date: 20110719
  Transmission Date: 20111222
  Serious: Yes (Life-Threatening, Hospitalization)
  Sender: FDA-Public Use
  Company Number: None

PATIENT
  Age: 80 Year
  Sex: Male
  Weight: 55.8 kg

DRUGS (1)
  1. ABIRATERONE [Suspect]
     Indication: PROSTATE CANCER METASTATIC
     Dosage: 1000 MG EVERY DAY PO
     Route: 048
     Dates: start: 20110602, end: 20110618

REACTIONS (5)
  - DIZZINESS [None]
  - RENAL FAILURE ACUTE [None]
  - CONFUSIONAL STATE [None]
  - HYPOTENSION [None]
  - SYNCOPE [None]
